FAERS Safety Report 5262294-2 (Version None)
Quarter: 2007Q1

REPORT INFORMATION
  Report Type: 
  Country: None (occurrence: None)
  Receive Date: 20070312
  Receipt Date: 20070227
  Transmission Date: 20070707
  Serious: Yes (Hospitalization)
  Sender: FDA-Public Use
  Company Number: PHRM2007FR00931

PATIENT
  Age: 70 Year
  Sex: Female

DRUGS (4)
  1. LIPANTHYL [Concomitant]
     Route: 048
  2. LAMISIL [Suspect]
     Indication: NAIL TINEA
     Dosage: 250 MG, QD
     Route: 048
     Dates: start: 20060101
  3. FORZAAR [Concomitant]
  4. LEVOTHYROXINE SODIUM [Concomitant]

REACTIONS (2)
  - BILIARY TRACT OPERATION [None]
  - PANCREATITIS [None]
